FAERS Safety Report 16003684 (Version 1)
Quarter: 2019Q1

REPORT INFORMATION
  Report Type: Spontaneous
  Country: ES (occurrence: ES)
  Receive Date: 20190226
  Receipt Date: 20190226
  Transmission Date: 20190418
  Serious: Yes (Hospitalization)
  Sender: FDA-Public Use
  Company Number: ES-TEVA-2019-ES-1015419

PATIENT
  Age: 82 Year
  Sex: Female

DRUGS (9)
  1. DUORESP SPIROMAX 320 MICROGRAMOS/9 MICROGRAMOS POLVO PARA INHALACION 1 [Concomitant]
     Dosage: 4 DOSAGE FORMS DAILY;
     Route: 055
  2. LACEROL RETARD 120 MG CAPSULAS DURAS DE LIBERACION PROLONGADA , 60 C?P [Concomitant]
     Dosage: 240 MILLIGRAM DAILY;
     Route: 048
  3. CALCIO + VITAMINA D [Concomitant]
     Dosage: 1 DOSAGE FORMS DAILY;
     Route: 048
  4. NEXIUM MUPS 40 MG COMPRIMIDOS GASTRORRESISTENTES , 28 COMPRIMIDOS [Concomitant]
     Dosage: 40 MILLIGRAM DAILY;
     Route: 048
  5. LORAZEPAM (1864A) [Concomitant]
     Active Substance: LORAZEPAM
     Route: 048
  6. TORASEMIDA (2351A) [Concomitant]
     Active Substance: TORSEMIDE
     Dosage: 5 MILLIGRAM DAILY;
     Route: 048
  7. FLUCONAZOL (2432A) [Suspect]
     Active Substance: FLUCONAZOLE
     Indication: ORAL CANDIDIASIS
     Dosage: 100 MILLIGRAM DAILY;
     Route: 048
     Dates: start: 20181228, end: 20190110
  8. DULOXETINA (7421A) [Concomitant]
     Active Substance: DULOXETINE
     Dosage: 30 MILLIGRAM DAILY;
     Route: 048
  9. LEVOFLOXACINO (2791A) [Concomitant]
     Active Substance: LEVOFLOXACIN
     Indication: BRONCHIECTASIS
     Dosage: 500 MILLIGRAM DAILY;
     Route: 048
     Dates: start: 20181228, end: 20190104

REACTIONS (3)
  - Fall [Recovered/Resolved]
  - Vomiting [Recovered/Resolved]
  - Asthenia [Recovered/Resolved]

NARRATIVE: CASE EVENT DATE: 20181228
